FAERS Safety Report 6823900-1 (Version None)
Quarter: 2010Q3

REPORT INFORMATION
  Report Type: 
  Country: None (occurrence: None)
  Receive Date: 20100708
  Receipt Date: 20100702
  Transmission Date: 20110219
  Serious: Yes (Death)
  Sender: FDA-Public Use
  Company Number: US-GILEAD-2010-0029936

PATIENT
  Sex: Female

DRUGS (7)
  1. LETAIRIS [Suspect]
     Indication: COR PULMONALE CHRONIC
     Route: 048
     Dates: start: 20090826, end: 20100526
  2. SPIRONOLACTONE [Concomitant]
  3. LASIX [Concomitant]
  4. URSO 250 [Concomitant]
  5. LACTOSE [Concomitant]
  6. VITAMIN A [Concomitant]
  7. VITAMIN D [Concomitant]

REACTIONS (2)
  - HEPATIC CIRRHOSIS [None]
  - UPPER GASTROINTESTINAL HAEMORRHAGE [None]
